FAERS Safety Report 8321551-3 (Version None)
Quarter: 2012Q2

REPORT INFORMATION
  Report Type: 
  Country: None (occurrence: None)
  Receive Date: 20120430
  Receipt Date: 20120424
  Transmission Date: 20120825
  Serious: No
  Sender: FDA-Public Use
  Company Number: US-PFIZER INC-2012101963

PATIENT
  Sex: Female
  Weight: 68 kg

DRUGS (14)
  1. HYDROCORTISONE ACETATE [Suspect]
     Indication: ERYTHEMA
  2. AMMONIUM LACTATE [Suspect]
     Indication: SKIN FISSURES
  3. HYDROCORTISONE ACETATE [Suspect]
     Indication: SKIN FISSURES
  4. CORTISONE ACETATE [Suspect]
     Indication: DRY SKIN
  5. LYRICA [Suspect]
     Indication: PAIN
     Dosage: 150 MG, 2X/DAY
     Route: 048
     Dates: start: 20111101
  6. AMMONIUM LACTATE [Suspect]
     Indication: RASH
     Dosage: UNK
  7. AMMONIUM LACTATE [Suspect]
     Indication: DRY SKIN
  8. HYDROCORTISONE ACETATE [Suspect]
     Indication: DRY SKIN
  9. CORTISONE ACETATE [Suspect]
     Indication: ERYTHEMA
  10. CORTISONE ACETATE [Suspect]
     Indication: SKIN FISSURES
  11. CORTISONE ACETATE [Suspect]
     Indication: RASH
     Dosage: UNK
  12. AMMONIUM LACTATE [Suspect]
     Indication: ERYTHEMA
  13. GABAPENTIN [Suspect]
     Dosage: UNK
  14. HYDROCORTISONE ACETATE [Suspect]
     Indication: RASH
     Dosage: UNK

REACTIONS (6)
  - RASH [None]
  - SKIN FISSURES [None]
  - DRUG INEFFECTIVE [None]
  - DRY SKIN [None]
  - HYPERKERATOSIS [None]
  - ERYTHEMA [None]
